FAERS Safety Report 16777416 (Version 1)
Quarter: 2019Q3

REPORT INFORMATION
  Report Type: Report from Study
  Country: ES (occurrence: ES)
  Receive Date: 20190905
  Receipt Date: 20190905
  Transmission Date: 20191005
  Serious: Yes (Other)
  Sender: FDA-Public Use
  Company Number: ES-MYLANLABS-2019M1083121

PATIENT
  Age: 71 Year
  Sex: Male

DRUGS (3)
  1. FENTANYL. [Suspect]
     Active Substance: FENTANYL
     Indication: BREAKTHROUGH PAIN
     Dosage: UNK
     Route: 062
  2. FENTANYL. [Suspect]
     Active Substance: FENTANYL
     Indication: BREAKTHROUGH PAIN
     Dosage: RESCUE DOSES
     Route: 060
  3. MORPHINE [Suspect]
     Active Substance: MORPHINE
     Indication: BREAKTHROUGH PAIN
     Dosage: UNK
     Route: 042

REACTIONS (6)
  - Fistula [Unknown]
  - Abdominal pain [Unknown]
  - Localised oedema [Unknown]
  - Pyrexia [Unknown]
  - Drug ineffective [Recovered/Resolved]
  - Necrosis [Unknown]
